FAERS Safety Report 7762207-5 (Version None)
Quarter: 2011Q3

REPORT INFORMATION
  Report Type: 
  Country: None (occurrence: None)
  Receive Date: 20110920
  Receipt Date: 20110914
  Transmission Date: 20111222
  Serious: Yes (Other)
  Sender: FDA-Public Use
  Company Number: AU-PFIZER INC-2011216041

PATIENT
  Age: 37 Year
  Sex: Female

DRUGS (1)
  1. SULFASALAZINE [Suspect]
     Indication: INFLAMMATION
     Dosage: 2 TABLETS DAILY
     Dates: start: 20110909, end: 20110901

REACTIONS (5)
  - DIARRHOEA [None]
  - CHILLS [None]
  - FATIGUE [None]
  - MALAISE [None]
  - NAUSEA [None]
